FAERS Safety Report 5471793-X (Version None)
Quarter: 2007Q3

REPORT INFORMATION
  Report Type: 
  Country: None (occurrence: None)
  Receive Date: 20070928
  Receipt Date: 20070525
  Transmission Date: 20080115
  Serious: No
  Sender: FDA-Public Use
  Company Number: US-BRISTOL-MYERS SQUIBB COMPANY-13794169

PATIENT
  Age: 68 Year
  Sex: Male
  Weight: 106 kg

DRUGS (12)
  1. DEFINITY [Suspect]
     Indication: ECHOCARDIOGRAM
     Dosage: 1/2 OF THE 1.5 CC VIAL IN 8CC OF NORMAL SALINE
     Route: 042
     Dates: start: 20070525
  2. ROBITUSSIN [Concomitant]
  3. FISH OIL [Concomitant]
  4. IBUPROFEN [Concomitant]
  5. MULTI-VITAMIN [Concomitant]
  6. LISINOPRIL [Concomitant]
  7. ZOCOR [Concomitant]
  8. LOPID [Concomitant]
  9. TERAZOSIN HCL [Concomitant]
  10. HYDROCHLOROTHIAZIDE [Concomitant]
  11. VITAMIN B [Concomitant]
  12. FOLTX [Concomitant]

REACTIONS (1)
  - MUSCLE SPASMS [None]
